FAERS Safety Report 22520475 (Version 1)
Quarter: 2023Q2

REPORT INFORMATION
  Report Type: Spontaneous
  Country: US (occurrence: None)
  Receive Date: 20230603
  Receipt Date: 20230603
  Transmission Date: 20230722
  Serious: No
  Sender: FDA-Public Use
  Company Number: None

PATIENT
  Age: 34 Year
  Sex: Male
  Weight: 83.25 kg

DRUGS (3)
  1. NURTEC ODT [Suspect]
     Active Substance: RIMEGEPANT SULFATE
     Indication: Migraine
  2. CLARITIN [Suspect]
     Active Substance: LORATADINE
     Indication: Seasonal allergy
  3. Multivitamin/mineral [Concomitant]

REACTIONS (3)
  - Fatigue [None]
  - Panic attack [None]
  - Dizziness [None]

NARRATIVE: CASE EVENT DATE: 20230602
